FAERS Safety Report 6317478-9 (Version None)
Quarter: 2009Q3

REPORT INFORMATION
  Report Type: 
  Country: None (occurrence: None)
  Receive Date: 20090821
  Receipt Date: 20090817
  Transmission Date: 20100115
  Serious: Yes (Other)
  Sender: FDA-Public Use
  Company Number: US-JNJFOC-20090806092

PATIENT
  Age: 45 Year
  Sex: Female

DRUGS (9)
  1. LEVAQUIN [Suspect]
     Indication: DRUG USE FOR UNKNOWN INDICATION
     Route: 048
  2. NORTRIPTYLINE HCL [Interacting]
     Indication: DRUG USE FOR UNKNOWN INDICATION
     Route: 048
  3. PROAIR HFA [Concomitant]
     Indication: ASTHMA
     Route: 065
  4. PULMICORT-100 [Concomitant]
     Indication: ASTHMA
     Route: 065
  5. HYDROCHLOROTHIAZIDE [Concomitant]
     Indication: HYPERTENSION
     Route: 048
  6. ENABLEX [Concomitant]
     Indication: HYPERTONIC BLADDER
     Route: 048
  7. OMEPRAZOLE [Concomitant]
     Indication: GASTRIC DISORDER
     Route: 048
  8. CLONAZEPAM [Concomitant]
     Indication: ANXIETY
     Route: 048
  9. TOPIRAMATE [Concomitant]
     Route: 048

REACTIONS (2)
  - DRUG INTERACTION [None]
  - PSYCHOTIC DISORDER [None]
